FAERS Safety Report 5678222-1 (Version None)
Quarter: 2008Q1

REPORT INFORMATION
  Report Type: 
  Country: None (occurrence: None)
  Receive Date: 20080319
  Receipt Date: 20080303
  Transmission Date: 20080703
  Serious: Yes (Death, Other)
  Sender: FDA-Public Use
  Company Number: 2008JP001134

PATIENT
  Age: 10 Year
  Sex: Male

DRUGS (8)
  1. PROGRAF [Suspect]
     Indication: BONE MARROW TRANSPLANT
  2. PREDNISOLONE [Concomitant]
  3. TRANILAST (TRANILAST) [Concomitant]
  4. MYCOPHENOLATE MOFETIL [Concomitant]
  5. THALIDOMIDE [Concomitant]
  6. OCTREOTIDE ACETATE [Concomitant]
  7. INFLIXIMAB (INFLIXIMAB) [Concomitant]
  8. ETOPOSIDE [Concomitant]

REACTIONS (8)
  - ABDOMINAL PAIN [None]
  - BLOOD LACTATE DEHYDROGENASE INCREASED [None]
  - EPSTEIN-BARR VIRUS INFECTION [None]
  - HISTIOCYTOSIS HAEMATOPHAGIC [None]
  - INFECTION [None]
  - PYREXIA [None]
  - RESPIRATORY FAILURE [None]
  - SERUM FERRITIN INCREASED [None]
